FAERS Safety Report 8992832 (Version 2)
Quarter: 2013Q1

REPORT INFORMATION
  Report Type: Spontaneous
  Country: US (occurrence: US)
  Receive Date: 20130102
  Receipt Date: 20130318
  Transmission Date: 20140127
  Serious: Yes (Hospitalization)
  Sender: FDA-Public Use
  Company Number: US-BAYER-2012-135986

PATIENT
  Age: 20 Year
  Sex: Female
  Weight: 68 kg

DRUGS (10)
  1. OCELLA [Suspect]
     Indication: CONTRACEPTION
     Dosage: UNK
     Dates: start: 200907, end: 201105
  2. OCELLA [Suspect]
     Indication: ACNE
  3. OCELLA [Suspect]
     Indication: PREMENSTRUAL SYNDROME
  4. MULTIVITAMIN [Concomitant]
     Indication: NUTRITIONAL SUPPLEMENTATION
     Dosage: 1 TABLET A DAY
  5. MS CONTIN [Concomitant]
  6. SENOKOT [SENNA ALEXANDRINA] [Concomitant]
  7. PERCOCET [OXYCODONE HYDROCHLORIDE,OXYCODONE TEREPHTHALATE,PARACETA [Concomitant]
  8. DONNATAL [Concomitant]
  9. PROTONIX [Concomitant]
  10. DILAUDID [Concomitant]

REACTIONS (2)
  - Splenic vein thrombosis [None]
  - Splenic infarction [None]
